FAERS Safety Report 14505277 (Version 1)
Quarter: 2018Q1

REPORT INFORMATION
  Report Type: Spontaneous
  Country: US (occurrence: US)
  Receive Date: 20180208
  Receipt Date: 20180208
  Transmission Date: 20180509
  Serious: Yes (Other)
  Sender: FDA-Public Use
  Company Number: US-WEST-WARD PHARMACEUTICALS CORP.-US-H14001-18-00800

PATIENT

DRUGS (1)
  1. ZOLPIDEM TARTARATE [Suspect]
     Active Substance: ZOLPIDEM TARTRATE
     Indication: INSOMNIA
     Route: 065

REACTIONS (6)
  - Nervousness [Unknown]
  - Coordination abnormal [Unknown]
  - Amnesia [Unknown]
  - Myalgia [Unknown]
  - Drug ineffective [Unknown]
  - Fluid retention [Unknown]
